FAERS Safety Report 12056007 (Version 2)
Quarter: 2016Q1

REPORT INFORMATION
  Report Type: Report from Study
  Country: HU (occurrence: HU)
  Receive Date: 20160210
  Receipt Date: 20160229
  Transmission Date: 20160526
  Serious: Yes (Hospitalization, Other)
  Sender: FDA-Public Use
  Company Number: HU-BRISTOL-MYERS SQUIBB COMPANY-BMS-2016-007490

PATIENT
  Age: 46 Year
  Sex: Female
  Weight: 63 kg

DRUGS (13)
  1. NIVOLUMAB [Suspect]
     Active Substance: NIVOLUMAB
     Dosage: 192 MG, UNK
     Route: 065
     Dates: start: 20151201, end: 20151201
  2. NIVOLUMAB [Suspect]
     Active Substance: NIVOLUMAB
     Dosage: 192 MG, UNK
     Route: 065
     Dates: start: 20151020, end: 20151020
  3. NIVOLUMAB [Suspect]
     Active Substance: NIVOLUMAB
     Indication: NON-SMALL CELL LUNG CANCER
     Dosage: 198 MG, UNK
     Route: 065
     Dates: start: 20150715, end: 20150715
  4. NIVOLUMAB [Suspect]
     Active Substance: NIVOLUMAB
     Dosage: 186 MG, UNK
     Route: 065
     Dates: start: 20150826, end: 20150826
  5. NIVOLUMAB [Suspect]
     Active Substance: NIVOLUMAB
     Dosage: 186 MG, UNK
     Route: 065
     Dates: start: 20150909, end: 20150909
  6. NIVOLUMAB [Suspect]
     Active Substance: NIVOLUMAB
     Dosage: 186 MG, UNK
     Route: 065
     Dates: start: 20150923, end: 20150923
  7. NIVOLUMAB [Suspect]
     Active Substance: NIVOLUMAB
     Dosage: 192 MG, UNK
     Route: 065
     Dates: start: 20151117, end: 20151117
  8. NIVOLUMAB [Suspect]
     Active Substance: NIVOLUMAB
     Dosage: 183 MG, UNK
     Route: 065
     Dates: start: 20160120, end: 20160120
  9. NIVOLUMAB [Suspect]
     Active Substance: NIVOLUMAB
     Dosage: 186 MG, UNK
     Route: 065
     Dates: start: 20151006, end: 20151006
  10. NIVOLUMAB [Suspect]
     Active Substance: NIVOLUMAB
     Dosage: 192 MG, UNK
     Route: 065
     Dates: start: 20151218, end: 20151218
  11. NIVOLUMAB [Suspect]
     Active Substance: NIVOLUMAB
     Dosage: 183 MG, UNK
     Route: 065
     Dates: start: 20150729, end: 20150729
  12. NIVOLUMAB [Suspect]
     Active Substance: NIVOLUMAB
     Dosage: 189 MG, UNK
     Route: 065
     Dates: start: 20160104, end: 20160104
  13. NIVOLUMAB [Suspect]
     Active Substance: NIVOLUMAB
     Dosage: 192 MG, UNK
     Route: 065
     Dates: start: 20150813, end: 20150813

REACTIONS (1)
  - Sepsis [Not Recovered/Not Resolved]

NARRATIVE: CASE EVENT DATE: 20160129
